FAERS Safety Report 4883575-8 (Version None)
Quarter: 2006Q1

REPORT INFORMATION
  Report Type: 
  Country: None (occurrence: None)
  Receive Date: 20060118
  Receipt Date: 20051027
  Transmission Date: 20060701
  Serious: Yes (Hospitalization, Other)
  Sender: FDA-Public Use
  Company Number: US-MERCK-0510USA09962

PATIENT
  Age: 55 Year
  Sex: Female
  Weight: 77 kg

DRUGS (20)
  1. VIOXX [Suspect]
     Indication: OSTEOARTHRITIS
     Route: 048
     Dates: start: 19991112, end: 20000509
  2. VIOXX [Suspect]
     Route: 048
     Dates: start: 19991112, end: 20000509
  3. VIOXX [Suspect]
     Route: 048
     Dates: start: 20010316, end: 20011025
  4. VIOXX [Suspect]
     Route: 048
     Dates: start: 20010316, end: 20011025
  5. VIOXX [Suspect]
     Route: 048
     Dates: start: 20020611, end: 20041004
  6. VIOXX [Suspect]
     Route: 048
     Dates: start: 20020611, end: 20041004
  7. VIOXX [Suspect]
     Route: 048
     Dates: start: 19991112, end: 20000509
  8. VIOXX [Suspect]
     Route: 048
     Dates: start: 19991112, end: 20000509
  9. VIOXX [Suspect]
     Route: 048
     Dates: start: 19991112, end: 20000509
  10. VIOXX [Suspect]
     Route: 048
     Dates: start: 19991112, end: 20000509
  11. VIOXX [Suspect]
     Route: 048
     Dates: start: 20010316, end: 20011025
  12. VIOXX [Suspect]
     Route: 048
     Dates: start: 20010316, end: 20011025
  13. VIOXX [Suspect]
     Route: 048
     Dates: start: 20010316, end: 20011025
  14. VIOXX [Suspect]
     Route: 048
     Dates: start: 20010316, end: 20011025
  15. VIOXX [Suspect]
     Route: 048
     Dates: start: 20020611, end: 20041004
  16. VIOXX [Suspect]
     Route: 048
     Dates: start: 20020611, end: 20041004
  17. VIOXX [Suspect]
     Route: 048
     Dates: start: 20020611, end: 20041004
  18. VIOXX [Suspect]
     Route: 048
     Dates: start: 20020611, end: 20041004
  19. PRILOSEC [Concomitant]
     Route: 065
  20. PROZAC [Concomitant]
     Route: 065

REACTIONS (9)
  - ASTHMA [None]
  - CHEST PAIN [None]
  - CHRONIC OBSTRUCTIVE PULMONARY DISEASE [None]
  - HYPOXIA [None]
  - MITRAL VALVE PROLAPSE [None]
  - MYOCARDIAL INFARCTION [None]
  - OSTEOARTHRITIS [None]
  - PRESCRIBED OVERDOSE [None]
  - PULMONARY EMBOLISM [None]
